FAERS Safety Report 26006667 (Version 1)
Quarter: 2025Q4

REPORT INFORMATION
  Report Type: Spontaneous
  Country: EU (occurrence: EU)
  Receive Date: 20251106
  Receipt Date: 20251106
  Transmission Date: 20260118
  Serious: Yes (Other)
  Sender: RANBAXY
  Company Number: EU-LRB-01072074

PATIENT
  Age: 50 Year
  Sex: Female
  Weight: 99 kg

DRUGS (2)
  1. OXALIPLATIN [Suspect]
     Active Substance: OXALIPLATIN
     Indication: Colorectal cancer
     Dosage: 270MG ADMINISTERED BY INFUSION OVER TWO HOURS
     Route: 065
     Dates: start: 20250411, end: 20250411
  2. CAPECITABINE [Concomitant]
     Active Substance: CAPECITABINE
     Indication: Product used for unknown indication
     Dosage: 2150MG PER 12 UUR
     Route: 048

REACTIONS (4)
  - Acute polyneuropathy [Recovering/Resolving]
  - Bronchospasm [Recovering/Resolving]
  - Muscle twitching [Recovering/Resolving]
  - Eye disorder [Recovering/Resolving]
